FAERS Safety Report 9423554 (Version 1)
Quarter: 2013Q3

REPORT INFORMATION
  Report Type: Spontaneous
  Country: US (occurrence: US)
  Receive Date: 20130726
  Receipt Date: 20130726
  Transmission Date: 20140515
  Serious: Yes (Death)
  Sender: FDA-Public Use
  Company Number: US-GLAXOSMITHKLINE-A1035031A

PATIENT
  Age: 59 Year
  Sex: Male

DRUGS (8)
  1. VOTRIENT [Suspect]
     Indication: RENAL CANCER
     Dosage: 400MG PER DAY
     Route: 048
     Dates: start: 20130603
  2. LOTREL [Concomitant]
  3. DURAGESIC [Concomitant]
  4. OXYCODONE [Concomitant]
  5. DEXAMETHASONE [Concomitant]
  6. AMBIEN [Concomitant]
  7. LACTULOSE [Concomitant]
  8. PROTONIX [Concomitant]

REACTIONS (1)
  - Death [Fatal]
